FAERS Safety Report 15537838 (Version 1)
Quarter: 2018Q4

REPORT INFORMATION
  Report Type: Spontaneous
  Country: TR (occurrence: TR)
  Receive Date: 20181022
  Receipt Date: 20181022
  Transmission Date: 20190205
  Serious: Yes (Hospitalization)
  Sender: FDA-Public Use
  Company Number: TR-LANNETT COMPANY, INC.-TR-2018LAN001226

PATIENT
  Age: 20 Year
  Sex: Female

DRUGS (3)
  1. HALOPERIDOL LACTATE. [Suspect]
     Active Substance: HALOPERIDOL LACTATE
     Indication: AGITATION
     Dosage: UNK
     Route: 030
  2. QUETIAPINE. [Suspect]
     Active Substance: QUETIAPINE
     Indication: BIPOLAR DISORDER
     Dosage: 300 MG, UNK
  3. BIPERIDEN [Concomitant]
     Active Substance: BIPERIDEN
     Indication: SPEECH DISORDER
     Dosage: UNK

REACTIONS (2)
  - Dystonia [Recovered/Resolved]
  - Tongue haematoma [Recovered/Resolved]
